FAERS Safety Report 4745201-8 (Version None)
Quarter: 2005Q3

REPORT INFORMATION
  Report Type: 
  Country: None (occurrence: None)
  Receive Date: 20050812
  Receipt Date: 20050802
  Transmission Date: 20060218
  Serious: Yes (Death)
  Sender: FDA-Public Use
  Company Number: 2005-02818

PATIENT
  Age: 68 Year
  Sex: Male

DRUGS (4)
  1. TRELSTAR [Suspect]
     Indication: PROSTATE CANCER
     Dosage: 11.25 MG, INTRAMUSCULAR
     Route: 030
     Dates: start: 20040928, end: 20040928
  2. CASODEX [Suspect]
     Indication: PROSTATE CANCER
     Dosage: 50MG, DAILY, ORAL
     Route: 048
     Dates: start: 20040901, end: 20041115
  3. CEMIDON B6 (ISONIAZID, PYRIDOXINE HYDROCHLORIDE) [Suspect]
     Indication: BLADDER CANCER
     Dosage: ORAL
     Route: 048
     Dates: start: 20040901, end: 20041101
  4. AUGMENTIN '125' [Suspect]
     Indication: BRONCHITIS CHRONIC
     Dosage: ORAL
     Route: 048
     Dates: start: 20041021, end: 20041101

REACTIONS (1)
  - HEPATITIS [None]
